FAERS Safety Report 9508560 (Version 1)
Quarter: 2013Q3

REPORT INFORMATION
  Report Type: Spontaneous
  Country: FR (occurrence: FR)
  Receive Date: 20130909
  Receipt Date: 20130909
  Transmission Date: 20140515
  Serious: Yes (Hospitalization)
  Sender: FDA-Public Use
  Company Number: FR-GLAXOSMITHKLINE-B0901625A

PATIENT
  Age: 23 Year
  Sex: Female
  Weight: 50 kg

DRUGS (8)
  1. BENLYSTA [Suspect]
     Indication: SYSTEMIC LUPUS ERYTHEMATOSUS
     Dosage: 10MGK CYCLIC
     Route: 042
     Dates: start: 201302
  2. CELLCEPT [Suspect]
     Indication: SYSTEMIC LUPUS ERYTHEMATOSUS
     Dosage: 1G TWICE PER DAY
     Route: 048
     Dates: start: 201210
  3. CORTANCYL [Suspect]
     Indication: SYSTEMIC LUPUS ERYTHEMATOSUS
     Dosage: 25MG PER DAY
     Route: 048
     Dates: start: 2010
  4. PLAQUENIL [Concomitant]
     Indication: SYSTEMIC LUPUS ERYTHEMATOSUS
     Dosage: 200MG TWICE PER DAY
     Route: 048
     Dates: start: 2010
  5. CALTRATE [Concomitant]
     Indication: SYSTEMIC LUPUS ERYTHEMATOSUS
     Dosage: 1TAB TWICE PER DAY
     Route: 048
     Dates: start: 2010
  6. SKENAN [Concomitant]
     Indication: PAIN
     Route: 048
  7. MYOLASTAN [Concomitant]
     Indication: PAIN
     Dosage: 1TAB PER DAY
     Route: 048
  8. PARACETAMOL [Concomitant]
     Route: 048

REACTIONS (6)
  - Pneumonia [Recovered/Resolved]
  - Pyrexia [Recovered/Resolved]
  - Cough [Recovered/Resolved]
  - Hyperthermia [Recovered/Resolved]
  - Inflammation [Recovered/Resolved]
  - Lymphopenia [Recovering/Resolving]
